FAERS Safety Report 24976895 (Version 1)
Quarter: 2025Q1

REPORT INFORMATION
  Report Type: Spontaneous
  Country: IN (occurrence: IN)
  Receive Date: 20250217
  Receipt Date: 20250217
  Transmission Date: 20250408
  Serious: Yes (Hospitalization, Other)
  Sender: COSETTE PHARMACEUTICALS INC
  Company Number: IN-COSETTE-CP2025IN000131

PATIENT
  Age: 20 Year
  Sex: Male

DRUGS (9)
  1. DAPSONE [Suspect]
     Active Substance: DAPSONE
     Indication: Lepromatous leprosy
     Route: 065
  2. DAPSONE [Suspect]
     Active Substance: DAPSONE
     Indication: Type 2 lepra reaction
     Route: 065
  3. CLOFAZIMINE [Suspect]
     Active Substance: CLOFAZIMINE
     Indication: Lepromatous leprosy
     Route: 065
  4. CLOFAZIMINE [Suspect]
     Active Substance: CLOFAZIMINE
     Indication: Type 2 lepra reaction
     Route: 065
  5. RIFAMPIN [Suspect]
     Active Substance: RIFAMPIN
     Indication: Lepromatous leprosy
     Route: 065
  6. RIFAMPIN [Suspect]
     Active Substance: RIFAMPIN
     Indication: Type 2 lepra reaction
  7. PREDNISOLONE [Suspect]
     Active Substance: PREDNISOLONE
     Indication: Product used for unknown indication
     Route: 065
  8. PREDNISOLONE [Suspect]
     Active Substance: PREDNISOLONE
     Route: 048
  9. THALIDOMIDE [Suspect]
     Active Substance: THALIDOMIDE
     Indication: Product used for unknown indication
     Route: 065

REACTIONS (3)
  - Bipolar disorder [Recovered/Resolved]
  - Catatonia [Recovered/Resolved]
  - Product use in unapproved indication [Unknown]
